FAERS Safety Report 4273263-3 (Version None)
Quarter: 2004Q1

REPORT INFORMATION
  Report Type: 
  Country: None (occurrence: None)
  Receive Date: 20040116
  Receipt Date: 20040109
  Transmission Date: 20041129
  Serious: Yes (Death, Life-Threatening)
  Sender: FDA-Public Use
  Company Number: WAES 0401AUS00031

PATIENT
  Age: 85 Year
  Sex: Male
  Weight: 89 kg

DRUGS (12)
  1. ACETAMINOPHEN [Concomitant]
  2. AMIODARONE HYDROCHLORIDE [Concomitant]
  3. ASPIRIN [Concomitant]
  4. BETAMETHASONE VALERATE [Concomitant]
  5. DOCUSATE SODIUM AND SENNA [Concomitant]
  6. EDECRIN [Suspect]
  7. FLUTICASONE PROPIONATE AND SALMETEROL XINAFOATE [Concomitant]
  8. PANTOPRAZOLE SODIUM [Concomitant]
  9. POLYVINYL ALCOHOL [Concomitant]
     Route: 047
  10. PROBENECID [Concomitant]
  11. TIOTROPIUM BROMIDE [Concomitant]
  12. UREA [Concomitant]

REACTIONS (17)
  - BASOPHIL COUNT DECREASED [None]
  - BLOOD CALCIUM DECREASED [None]
  - BLOOD CALCIUM INCREASED [None]
  - BLOOD CREATININE DECREASED [None]
  - BLOOD GLUCOSE DECREASED [None]
  - BLOOD LACTATE DEHYDROGENASE INCREASED [None]
  - DEATH [None]
  - EOSINOPHIL COUNT DECREASED [None]
  - HAEMATOCRIT DECREASED [None]
  - HAEMOGLOBIN DECREASED [None]
  - LYMPHOCYTE COUNT DECREASED [None]
  - MONOCYTE COUNT DECREASED [None]
  - NEUTROPHIL COUNT DECREASED [None]
  - PLATELET COUNT INCREASED [None]
  - RED BLOOD CELL COUNT ABNORMAL [None]
  - SUDDEN DEATH [None]
  - THROMBOCYTOPENIA [None]
